FAERS Safety Report 7496311-6 (Version None)
Quarter: 2011Q2

REPORT INFORMATION
  Report Type: 
  Country: None (occurrence: None)
  Receive Date: 20110523
  Receipt Date: 20110516
  Transmission Date: 20111010
  Serious: Yes (Other)
  Sender: FDA-Public Use
  Company Number: DE-PFIZER INC-2011105295

PATIENT
  Sex: Male

DRUGS (6)
  1. TRAVOPROST AND TIMOLOL [Suspect]
     Dosage: UNK
     Dates: end: 20090301
  2. BIMATOPROST AND TIMOLOL MALEATE [Suspect]
     Dosage: UNK
     Dates: end: 20090301
  3. COSOPT [Suspect]
     Dosage: UNK
     Dates: end: 20090301
  4. XALATAN [Suspect]
     Dosage: UNK
     Dates: end: 20090301
  5. AZOPT [Suspect]
     Dosage: UNK
     Dates: end: 20090301
  6. TAFLUPROST [Suspect]
     Dosage: UNK
     Dates: start: 20090401, end: 20100801

REACTIONS (1)
  - PROSTATIC SPECIFIC ANTIGEN INCREASED [None]
